FAERS Safety Report 5852471-1 (Version None)
Quarter: 2008Q3

REPORT INFORMATION
  Report Type: 
  Country: None (occurrence: None)
  Receive Date: 20080820
  Receipt Date: 20080820
  Transmission Date: 20090109
  Serious: No
  Sender: FDA-Public Use
  Company Number: None

PATIENT
  Age: 12 Year
  Sex: Female

DRUGS (1)
  1. NOVOLOG [Suspect]
     Indication: BLOOD GLUCOSE ABNORMAL
     Dosage: USES UP TO 100 UNITS DAILY VIA INSULIN PUMP

REACTIONS (4)
  - BLOOD GLUCOSE INCREASED [None]
  - LABORATORY TEST ABNORMAL [None]
  - PHARMACEUTICAL PRODUCT COMPLAINT [None]
  - VOMITING [None]
